FAERS Safety Report 15715401 (Version 3)
Quarter: 2019Q1

REPORT INFORMATION
  Report Type: Spontaneous
  Country: US (occurrence: US)
  Receive Date: 20181212
  Receipt Date: 20190104
  Transmission Date: 20190417
  Serious: Yes (Hospitalization, Other)
  Sender: FDA-Public Use
  Company Number: US-PFIZER INC-2018508644

PATIENT

DRUGS (9)
  1. MORPHINE [Concomitant]
     Active Substance: MORPHINE
     Dosage: UNK
     Route: 064
  2. BUPRENORPHINE. [Concomitant]
     Active Substance: BUPRENORPHINE
     Dosage: UNK
     Route: 064
  3. NALOXONE [Concomitant]
     Active Substance: NALOXONE
     Dosage: UNK
     Route: 064
  4. METHAMPHETAMINE [METAMFETAMINE] [Concomitant]
     Active Substance: METHAMPHETAMINE
     Dosage: UNK
  5. FENTANYL CITRATE. [Suspect]
     Active Substance: FENTANYL CITRATE
     Dosage: UNK
     Route: 064
  6. AMPHETAMINE [Concomitant]
     Active Substance: AMPHETAMINE
     Dosage: UNK
  7. PROMETHAZINE [Concomitant]
     Active Substance: PROMETHAZINE\PROMETHAZINE HYDROCHLORIDE
     Dosage: UNK
  8. COCAINE [Concomitant]
     Active Substance: COCAINE
     Dosage: UNK
  9. NEURONTIN [Suspect]
     Active Substance: GABAPENTIN
     Dosage: UNK
     Route: 064

REACTIONS (10)
  - Drug withdrawal syndrome neonatal [Unknown]
  - Tremor [Unknown]
  - Tachypnoea [Unknown]
  - Muscle twitching [Unknown]
  - Nystagmus [Unknown]
  - Foetal exposure during pregnancy [Unknown]
  - Musculoskeletal stiffness [Unknown]
  - Dyskinesia [Unknown]
  - Myoclonus [Unknown]
  - Livedo reticularis [Unknown]
